FAERS Safety Report 6821460-2 (Version None)
Quarter: 2010Q2

REPORT INFORMATION
  Report Type: 
  Country: None (occurrence: None)
  Receive Date: 20100630
  Receipt Date: 20100618
  Transmission Date: 20101027
  Serious: Yes (Hospitalization)
  Sender: FDA-Public Use
  Company Number: 2010SP001732

PATIENT
  Age: 72 Year
  Sex: Male
  Weight: 98.7 kg

DRUGS (8)
  1. ARFORMOTEROL [Suspect]
     Indication: CHRONIC OBSTRUCTIVE PULMONARY DISEASE
     Dosage: 5 UG; BID; INHALATION
     Route: 055
     Dates: start: 20100429, end: 20100601
  2. EFFEXOR /10233802/ [Concomitant]
  3. FEXOFENADINE [Concomitant]
  4. LOTREL [Concomitant]
  5. ACETYLSALICYLIC ACID [Concomitant]
  6. HYDROCHLOROTHIAZIDE [Concomitant]
  7. VYTORIN [Concomitant]
  8. COMBIVENT /01038501/ [Concomitant]

REACTIONS (1)
  - MYOCARDIAL ISCHAEMIA [None]
